FAERS Safety Report 9376256 (Version 3)
Quarter: 2013Q3

REPORT INFORMATION
  Report Type: Spontaneous
  Country: US (occurrence: US)
  Receive Date: 20130701
  Receipt Date: 20130920
  Transmission Date: 20140515
  Serious: Yes (Hospitalization, Other)
  Sender: FDA-Public Use
  Company Number: US-AMGEN-USASP2013044786

PATIENT
  Age: 42 Year
  Sex: Female
  Weight: 53.52 kg

DRUGS (8)
  1. ENBREL [Suspect]
     Indication: RHEUMATOID ARTHRITIS
     Dosage: 50 MG, QWK
     Route: 058
     Dates: start: 20050513
  2. ATENOLOL [Concomitant]
     Indication: MIGRAINE
     Dosage: 25 MG, QD
     Route: 048
     Dates: start: 2001
  3. PRENATAL VITAMINS                  /02014401/ [Concomitant]
     Indication: PREGNANCY
     Dosage: ONE TAB,  QD
     Route: 048
     Dates: start: 201111
  4. MIRALAX                            /00754501/ [Concomitant]
     Indication: CONSTIPATION
     Dosage: UNK UNK, QD
     Route: 048
     Dates: start: 200310
  5. FIORICET [Concomitant]
     Indication: MIGRAINE
     Dosage: 1-2 TAB PRN
     Route: 048
     Dates: start: 200208
  6. VITAMIN B12 [Concomitant]
     Indication: NAUSEA
     Dosage: 1 TAB , QD
     Route: 048
     Dates: start: 200611
  7. VITAMIN B12 [Concomitant]
     Indication: VOMITING
  8. UNISOM                             /00334102/ [Concomitant]
     Dosage: 1 TAB, QD
     Route: 048
     Dates: start: 201111, end: 201206

REACTIONS (3)
  - Hospitalisation [Recovered/Resolved]
  - Cervical incompetence [Recovered/Resolved]
  - Beta haemolytic streptococcal infection [Unknown]
